FAERS Safety Report 25211374 (Version 1)
Quarter: 2025Q2

REPORT INFORMATION
  Report Type: Spontaneous
  Country: CA (occurrence: CA)
  Receive Date: 20250417
  Receipt Date: 20250417
  Transmission Date: 20250716
  Serious: Yes (Death)
  Sender: AMGEN
  Company Number: CA-AMGEN-CANSP2025073146

PATIENT

DRUGS (13)
  1. RITUXIMAB [Suspect]
     Active Substance: RITUXIMAB
     Indication: Central nervous system lymphoma
     Route: 040
  2. RITUXIMAB [Suspect]
     Active Substance: RITUXIMAB
     Route: 058
  3. RITUXIMAB [Suspect]
     Active Substance: RITUXIMAB
     Route: 058
  4. FILGRASTIM [Suspect]
     Active Substance: FILGRASTIM
     Indication: Central nervous system lymphoma
     Route: 065
  5. FILGRASTIM [Suspect]
     Active Substance: FILGRASTIM
     Route: 065
  6. METHOTREXATE [Concomitant]
     Active Substance: METHOTREXATE
     Route: 040
  7. METHOTREXATE [Concomitant]
     Active Substance: METHOTREXATE
     Route: 040
  8. PROCARBAZINE [Concomitant]
     Active Substance: PROCARBAZINE
     Route: 048
  9. CYTARABINE [Concomitant]
     Active Substance: CYTARABINE
     Route: 040
  10. CYTARABINE [Concomitant]
     Active Substance: CYTARABINE
     Route: 040
  11. CYTARABINE [Concomitant]
     Active Substance: CYTARABINE
     Dosage: 1 GRAM PER SQUARE METRE, BID ON DAYS 2 AND 3
     Route: 040
  12. THIOTEPA [Concomitant]
     Active Substance: THIOTEPA
     Route: 040
  13. BUSULFAN [Concomitant]
     Active Substance: BUSULFAN
     Route: 040

REACTIONS (8)
  - Central nervous system lymphoma [Fatal]
  - Brain abscess [Fatal]
  - Dementia [Fatal]
  - Death [Fatal]
  - Cerebrovascular accident [Fatal]
  - Neoplasm malignant [Fatal]
  - Therapy partial responder [Unknown]
  - Adverse event [Unknown]
